FAERS Safety Report 25260793 (Version 1)
Quarter: 2025Q2

REPORT INFORMATION
  Report Type: Spontaneous
  Country: IR (occurrence: IR)
  Receive Date: 20250501
  Receipt Date: 20250501
  Transmission Date: 20250716
  Serious: Yes (Death, Hospitalization, Other)
  Sender: NOVO NORDISK
  Company Number: IR-NOVOPROD-1411198

PATIENT
  Weight: 4 kg

DRUGS (1)
  1. LEVEMIR [Suspect]
     Active Substance: INSULIN DETEMIR
     Indication: Product used for unknown indication
     Route: 064

REACTIONS (7)
  - Death neonatal [Fatal]
  - Gastrointestinal haemorrhage [Unknown]
  - Delayed passage of meconium [Recovered/Resolved]
  - Haematemesis [Unknown]
  - Haematochezia [Unknown]
  - Infantile vomiting [Unknown]
  - Foetal exposure during pregnancy [Recovered/Resolved]
